FAERS Safety Report 9937228 (Version 1)
Quarter: 2014Q1

REPORT INFORMATION
  Report Type: Spontaneous
  Country: GB (occurrence: GB)
  Receive Date: 20140301
  Receipt Date: 20140301
  Transmission Date: 20141002
  Serious: Yes (Other)
  Sender: FDA-Public Use
  Company Number: PHHY2014GB021657

PATIENT
  Age: 38 Year
  Sex: Male
  Weight: 76.2 kg

DRUGS (2)
  1. METRONIDAZOLE [Suspect]
     Indication: ABSCESS DRAINAGE
     Dosage: 400 MG, BID
     Route: 048
     Dates: start: 20140205, end: 20140208
  2. CO-AMOXICLAV [Concomitant]

REACTIONS (2)
  - Feeling drunk [Recovering/Resolving]
  - Somnolence [Recovered/Resolved with Sequelae]
